FAERS Safety Report 6181421-6 (Version None)
Quarter: 2009Q2

REPORT INFORMATION
  Report Type: 
  Country: None (occurrence: None)
  Receive Date: 20090505
  Receipt Date: 20090505
  Transmission Date: 20091009
  Serious: Yes (Other)
  Sender: FDA-Public Use
  Company Number: None

PATIENT

DRUGS (1)
  1. TYLENOL [Suspect]

REACTIONS (5)
  - ABDOMINAL PAIN UPPER [None]
  - DYSGEUSIA [None]
  - ERUCTATION [None]
  - FLUSHING [None]
  - PAROSMIA [None]
